FAERS Safety Report 7121484-4 (Version None)
Quarter: 2010Q4

REPORT INFORMATION
  Report Type: 
  Country: None (occurrence: None)
  Receive Date: 20101124
  Receipt Date: 20101117
  Transmission Date: 20110411
  Serious: Yes (Other)
  Sender: FDA-Public Use
  Company Number: GR-JNJFOC-20101106317

PATIENT
  Age: 70 Year
  Sex: Male

DRUGS (3)
  1. REMICADE [Suspect]
     Indication: PSORIASIS
     Dosage: 2ND INFUSION
     Route: 042
  2. REMICADE [Suspect]
     Dosage: 1ST INFUSION
     Route: 042
  3. CYCLOSPORINE [Suspect]
     Indication: PSORIASIS
     Dosage: STARTED BEGINNING OF SUMMER 2010

REACTIONS (1)
  - PNEUMOTHORAX [None]
